FAERS Safety Report 8064713-5 (Version None)
Quarter: 2012Q1

REPORT INFORMATION
  Report Type: 
  Country: None (occurrence: None)
  Receive Date: 20120123
  Receipt Date: 20120111
  Transmission Date: 20120608
  Serious: Yes (Hospitalization, Other)
  Sender: FDA-Public Use
  Company Number: US-ELI_LILLY_AND_COMPANY-US201011002411

PATIENT
  Sex: Female

DRUGS (7)
  1. FORTEO [Suspect]
     Indication: OSTEOPOROSIS
     Dosage: 20 UG, QD
     Route: 065
     Dates: start: 20101101
  2. FORTEO [Suspect]
     Dosage: 20 UG, QD
  3. OXYCODONE HCL [Concomitant]
  4. FORTEO [Suspect]
     Dosage: 20 UG, QD
     Route: 065
  5. TYLENOL W/ CODEINE [Concomitant]
  6. FORTEO [Suspect]
     Dosage: 20 UG, QD
     Route: 065
  7. FORTEO [Suspect]
     Dosage: 20 UG, QD

REACTIONS (18)
  - CONSTIPATION [None]
  - OEDEMA PERIPHERAL [None]
  - NAUSEA [None]
  - ESCHERICHIA URINARY TRACT INFECTION [None]
  - DIZZINESS [None]
  - URINARY INCONTINENCE [None]
  - INCOHERENT [None]
  - INJECTION SITE DYSAESTHESIA [None]
  - SURGERY [None]
  - DRUG DOSE OMISSION [None]
  - PYREXIA [None]
  - MUSCLE SPASMS [None]
  - PRURITUS GENERALISED [None]
  - NEPHROLITHIASIS [None]
  - GENERAL PHYSICAL HEALTH DETERIORATION [None]
  - URINARY TRACT INFECTION ENTEROCOCCAL [None]
  - ASTHENIA [None]
  - DYSSTASIA [None]
